FAERS Safety Report 7372154-9 (Version None)
Quarter: 2011Q1

REPORT INFORMATION
  Report Type: 
  Country: None (occurrence: None)
  Receive Date: 20110322
  Receipt Date: 20110322
  Transmission Date: 20110831
  Serious: Yes (Death)
  Sender: FDA-Public Use
  Company Number: None

PATIENT
  Age: 47 Year
  Sex: Male

DRUGS (12)
  1. LACTULOSE [Concomitant]
  2. ONDANSETRON [Concomitant]
  3. OMEPRAZOLE [Concomitant]
  4. PROCHLORPERAZINE [Concomitant]
  5. CLONAZEPAM [Concomitant]
  6. IPRATROPIUM BROMIDE [Concomitant]
  7. NPH INSULIN [Concomitant]
  8. METOCLOPRAMIDE [Concomitant]
  9. PREDNISOLONE [Concomitant]
  10. FLUTICASONE PROPIONATE [Concomitant]
  11. REVLIMID [Suspect]
     Indication: MULTIPLE MYELOMA
     Dosage: REVLIMID 10 MG DAILY ORALLY
     Route: 048
     Dates: start: 20091101, end: 20100301
  12. ALBUTEROL [Concomitant]

REACTIONS (3)
  - NEOPLASM MALIGNANT [None]
  - MULTIPLE MYELOMA [None]
  - BLOOD CREATININE INCREASED [None]
